FAERS Safety Report 6106224-X (Version None)
Quarter: 2009Q1

REPORT INFORMATION
  Report Type: 
  Country: None (occurrence: None)
  Receive Date: 20090306
  Receipt Date: 20090226
  Transmission Date: 20090719
  Serious: Yes (Other)
  Sender: FDA-Public Use
  Company Number: BR-ELI_LILLY_AND_COMPANY-BR200902007674

PATIENT
  Sex: Female
  Weight: 100 kg

DRUGS (2)
  1. CYMBALTA [Suspect]
     Indication: BACK PAIN
     Dosage: UNK, DAILY (1/D)
     Route: 048
     Dates: start: 20090221
  2. ARADOIS [Concomitant]
     Indication: HYPERTENSION
     Dosage: 50 MG, DAILY (1/D)
     Route: 065

REACTIONS (8)
  - APHONIA [None]
  - EYE DISORDER [None]
  - HEADACHE [None]
  - LIP DISCOLOURATION [None]
  - LOSS OF CONSCIOUSNESS [None]
  - NAUSEA [None]
  - PARAESTHESIA [None]
  - VOMITING [None]
